FAERS Safety Report 5687585-2 (Version None)
Quarter: 2008Q1

REPORT INFORMATION
  Report Type: 
  Country: None (occurrence: None)
  Receive Date: 20080328
  Receipt Date: 20061212
  Transmission Date: 20080703
  Serious: Yes (Hospitalization, Other)
  Sender: FDA-Public Use
  Company Number: US-BAYER-US-2006-035814

PATIENT
  Age: 32 Year
  Sex: Female
  Weight: 102 kg

DRUGS (2)
  1. MIRENA [Suspect]
     Indication: CONTRACEPTION
     Route: 015
     Dates: start: 20060119, end: 20061114
  2. NEXIUM [Concomitant]

REACTIONS (3)
  - ABDOMINAL PAIN LOWER [None]
  - RUPTURED ECTOPIC PREGNANCY [None]
  - UTERINE RUPTURE [None]
